FAERS Safety Report 10668143 (Version 4)
Quarter: 2015Q2

REPORT INFORMATION
  Report Type: Report from Study
  Country: FR (occurrence: None)
  Receive Date: 20141218
  Receipt Date: 20150401
  Transmission Date: 20150821
  Serious: Yes (Hospitalization, Disabling)
  Sender: FDA-Public Use
  Company Number: KAD201412-001612

PATIENT
  Age: 53 Year
  Sex: Female
  Weight: 45 kg

DRUGS (11)
  1. SOVALDI [Suspect]
     Active Substance: SOFOSBUVIR
     Dosage: 1 TAB IN THE MORNING
     Route: 048
     Dates: start: 20141127
  2. BETAMETHASONE [Concomitant]
     Active Substance: BETAMETHASONE
  3. CONTRAMAL (TRAMADOL HYDROCHLORIDE) [Concomitant]
  4. SUBUTEX 8 MG TABLET (BUPRENORPHINE) [Concomitant]
  5. RIBAVIRIN. [Suspect]
     Active Substance: RIBAVIRIN
     Dosage: 2 IN MORNING AND 3 AT NIGHT
     Route: 048
     Dates: start: 20141127
  6. BUPRENORPHINE [Concomitant]
     Active Substance: BUPRENORPHINE
  7. DEXERYL (GLYCEROL, PARAFFIN LIQUID, VASELINE) [Concomitant]
  8. HYDROXYZINE DICHLORHYDRATE [Concomitant]
  9. AERIUS [Concomitant]
     Active Substance: DESLORATADINE
  10. DOLIPRANE (ACETAMINOPHEN) [Concomitant]
  11. ATARAX 25 MG TABLET (HYDROXYZINE HYDROCHLORIDE) [Concomitant]

REACTIONS (1)
  - Acute generalised exanthematous pustulosis [None]

NARRATIVE: CASE EVENT DATE: 20141202
